FAERS Safety Report 14019738 (Version 4)
Quarter: 2018Q2

REPORT INFORMATION
  Report Type: Report from Study
  Country: CA (occurrence: CA)
  Receive Date: 20170928
  Receipt Date: 20180414
  Transmission Date: 20180711
  Serious: Yes (Hospitalization, Other)
  Sender: FDA-Public Use
  Company Number: CA-BRISTOL-MYERS SQUIBB COMPANY-BMS-2017-052305

PATIENT
  Age: 72 Year
  Sex: Female

DRUGS (1)
  1. ABATACEPT [Suspect]
     Active Substance: ABATACEPT
     Indication: RHEUMATOID ARTHRITIS
     Dosage: 750 MG, Q4WK
     Route: 042
     Dates: start: 20100517

REACTIONS (11)
  - Herpes zoster [Recovering/Resolving]
  - Device breakage [Unknown]
  - Fall [Unknown]
  - Hip fracture [Unknown]
  - Tongue ulceration [Recovering/Resolving]
  - Pain [Unknown]
  - Pain in extremity [Not Recovered/Not Resolved]
  - Blood pressure increased [Not Recovered/Not Resolved]
  - Femur fracture [Unknown]
  - Upper limb fracture [Unknown]
  - Arthralgia [Not Recovered/Not Resolved]

NARRATIVE: CASE EVENT DATE: 20170512
